FAERS Safety Report 5188583-8 (Version None)
Quarter: 2006Q4

REPORT INFORMATION
  Report Type: 
  Country: None (occurrence: None)
  Receive Date: 20061221
  Receipt Date: 20060207
  Transmission Date: 20070319
  Serious: Yes (Hospitalization)
  Sender: FDA-Public Use
  Company Number: IT-ELI_LILLY_AND_COMPANY-IT200602002603

PATIENT
  Age: 56 Year
  Sex: Male

DRUGS (8)
  1. ALIMTA [Suspect]
     Indication: NON-SMALL CELL LUNG CANCER
     Dosage: 800 MG, 3/W
     Route: 042
     Dates: start: 20060127, end: 20060321
  2. FOLIC ACID [Concomitant]
     Indication: PROPHYLAXIS
     Dosage: 1 D/F, UNK
     Route: 048
     Dates: start: 20060120, end: 20060321
  3. VITAMIN B-12 [Concomitant]
     Indication: PROPHYLAXIS
     Dates: start: 20060120, end: 20060321
  4. DECADRON [Concomitant]
     Indication: PROPHYLAXIS
  5. GARDENALE [Concomitant]
     Dates: start: 20050101
  6. ESOPRAL                                 /ITA/ [Concomitant]
     Dates: start: 20050101
  7. FRAXIPARINA [Concomitant]
  8. PLASIL [Concomitant]

REACTIONS (1)
  - URTICARIA GENERALISED [None]
